FAERS Safety Report 10927676 (Version 2)
Quarter: 2015Q2

REPORT INFORMATION
  Report Type: Spontaneous
  Country: ES (occurrence: ES)
  Receive Date: 20150319
  Receipt Date: 20150604
  Transmission Date: 20150821
  Serious: Yes (Other)
  Sender: FDA-Public Use
  Company Number: ES-AMGEN-ESPSP2015003489

PATIENT
  Age: 53 Year
  Sex: Male

DRUGS (4)
  1. METOJECT [Suspect]
     Active Substance: METHOTREXATE SODIUM
     Indication: PSORIATIC ARTHROPATHY
     Dosage: 12.5 MG, WEEKLY
     Route: 058
  2. METOJECT [Suspect]
     Active Substance: METHOTREXATE SODIUM
     Dosage: 17.5 MG, WEEKLY
     Route: 058
  3. METOJECT [Suspect]
     Active Substance: METHOTREXATE SODIUM
     Dosage: 15 MG, WEEKLY
     Route: 058
     Dates: start: 201306
  4. ENBREL [Suspect]
     Active Substance: ETANERCEPT
     Indication: PSORIATIC ARTHROPATHY
     Dosage: 50 MG, WEEKLY, ON FRIDAYS
     Route: 058
     Dates: start: 20140711

REACTIONS (5)
  - Pain in extremity [Recovering/Resolving]
  - Psoriasis [Unknown]
  - Musculoskeletal pain [Recovering/Resolving]
  - Psoriatic arthropathy [Unknown]
  - Drug-induced liver injury [Recovered/Resolved]
